FAERS Safety Report 8614683 (Version 9)
Quarter: 2015Q3

REPORT INFORMATION
  Report Type: Report from Study
  Country: CA (occurrence: CA)
  Receive Date: 20120614
  Receipt Date: 20150701
  Transmission Date: 20151125
  Serious: Yes (Other)
  Sender: FDA-Public Use
  Company Number: PHHY2010CA22433

PATIENT
  Age: 45 Year
  Sex: Female

DRUGS (10)
  1. EXJADE [Suspect]
     Active Substance: DEFERASIROX
     Indication: IRON OVERLOAD
     Dosage: 1000 MG, QD
     Route: 048
     Dates: start: 20070901, end: 201002
  2. EXJADE [Suspect]
     Active Substance: DEFERASIROX
     Dosage: 1250 MG, QD
     Route: 048
  3. ATENOLOL. [Concomitant]
     Active Substance: ATENOLOL
     Indication: PRODUCT USED FOR UNKNOWN INDICATION
     Dosage: UNK
     Route: 065
  4. EXJADE [Suspect]
     Active Substance: DEFERASIROX
     Dosage: 1250 MG, UNK
     Route: 048
  5. VENTOLIN [Concomitant]
     Active Substance: ALBUTEROL SULFATE
     Indication: PRODUCT USED FOR UNKNOWN INDICATION
     Dosage: UNK
     Route: 065
  6. EXJADE [Suspect]
     Active Substance: DEFERASIROX
     Dosage: 500 MG, QD
     Route: 048
     Dates: start: 20150414
  7. EXJADE [Suspect]
     Active Substance: DEFERASIROX
     Dosage: 1000 MG, UNK
     Route: 048
     Dates: end: 20130527
  8. EXJADE [Suspect]
     Active Substance: DEFERASIROX
     Dosage: 1500 MG, QD
     Route: 048
  9. EXJADE [Suspect]
     Active Substance: DEFERASIROX
     Dosage: 1000 MG, QD
     Route: 048
     Dates: start: 20150501
  10. EXJADE [Suspect]
     Active Substance: DEFERASIROX
     Dosage: 1000 MG, QD
     Route: 048

REACTIONS (17)
  - Renal disorder [Unknown]
  - Pulmonary mass [Unknown]
  - Hepatic steatosis [Unknown]
  - Haemosiderosis [Unknown]
  - Serum ferritin decreased [Unknown]
  - Mycobacterium avium complex infection [Unknown]
  - Hypersensitivity [Unknown]
  - Weight decreased [Unknown]
  - Hypersomnia [Unknown]
  - Drug intolerance [Unknown]
  - Hepatic cirrhosis [Unknown]
  - Confusional state [Unknown]
  - Dizziness [Unknown]
  - Serum ferritin increased [Unknown]
  - Heart rate decreased [Unknown]
  - Blood creatinine increased [Recovered/Resolved]
  - Fatigue [Unknown]

NARRATIVE: CASE EVENT DATE: 200807
